FAERS Safety Report 9947015 (Version 1)
Quarter: 2014Q1

REPORT INFORMATION
  Report Type: Report from Study
  Country: US (occurrence: US)
  Receive Date: 20140303
  Receipt Date: 20140303
  Transmission Date: 20141002
  Serious: No
  Sender: FDA-Public Use
  Company Number: US-ABBVIE-13P-163-1058507-00

PATIENT
  Sex: Female

DRUGS (1)
  1. HUMIRA [Suspect]
     Indication: PRODUCT USED FOR UNKNOWN INDICATION
     Route: 058
     Dates: start: 20130222, end: 20130304

REACTIONS (3)
  - Injection site urticaria [Not Recovered/Not Resolved]
  - Oedema peripheral [Unknown]
  - Urticaria [Not Recovered/Not Resolved]
